FAERS Safety Report 9544139 (Version 4)
Quarter: 2014Q1

REPORT INFORMATION
  Report Type: Report from Study
  Country: US (occurrence: US)
  Receive Date: 20130923
  Receipt Date: 20140108
  Transmission Date: 20141002
  Serious: Yes (Death, Hospitalization)
  Sender: FDA-Public Use
  Company Number: US-ROCHE-1270163

PATIENT
  Age: 62 Year
  Sex: Female
  Weight: 70.3 kg

DRUGS (22)
  1. VISMODEGIB [Suspect]
     Indication: PANCREATIC CARCINOMA
     Route: 048
     Dates: start: 20130820, end: 20130905
  2. SIROLIMUS [Suspect]
     Indication: PANCREATIC CARCINOMA
     Route: 048
     Dates: start: 20130830, end: 20130905
  3. ATIVAN [Concomitant]
     Route: 048
  4. DULCOLAX (BISACODYL) [Concomitant]
  5. DUROGESIC [Concomitant]
     Dosage: 12MCG PER HOUR
     Route: 062
  6. LISINOPRIL [Concomitant]
     Route: 048
  7. LOVENOX [Concomitant]
  8. ROXICODONE [Concomitant]
     Route: 048
  9. PANCRELIPASE [Concomitant]
     Route: 065
  10. PANCRELIPASE [Concomitant]
     Route: 065
  11. PANCRELIPASE [Concomitant]
     Route: 065
  12. POTASSIUM CHLORIDE [Concomitant]
     Route: 048
  13. DOCUSATE SODIUM\SENNOSIDES [Concomitant]
     Dosage: 50/8.6 MG
     Route: 048
  14. ZOFRAN [Concomitant]
     Route: 048
  15. FLUOCINONIDE [Concomitant]
     Route: 061
  16. CETIRIZINE [Concomitant]
     Route: 048
  17. GABAPENTIN [Concomitant]
     Route: 065
  18. MIRALAX [Concomitant]
  19. DOCUSATE SODIUM [Concomitant]
  20. CREON [Concomitant]
     Dosage: 3-4 CAPSULES
     Route: 048
  21. EMLA [Concomitant]
     Route: 061
  22. NEXIUM [Concomitant]
     Route: 065

REACTIONS (4)
  - Pancreatic carcinoma [Fatal]
  - Hyponatraemia [Recovering/Resolving]
  - Dehydration [Recovering/Resolving]
  - Abdominal pain [Recovering/Resolving]
